FAERS Safety Report 17069792 (Version 1)
Quarter: 2019Q4

REPORT INFORMATION
  Report Type: Spontaneous
  Country: FR (occurrence: FR)
  Receive Date: 20191125
  Receipt Date: 20191125
  Transmission Date: 20200122
  Serious: Yes (Death, Hospitalization)
  Sender: FDA-Public Use
  Company Number: FR-TEVA-2019-FR-1140631

PATIENT
  Age: 62 Year
  Sex: Male
  Weight: 57.8 kg

DRUGS (15)
  1. NOVORAPID [Concomitant]
     Active Substance: INSULIN ASPART
  2. CLOXACILLINE [Concomitant]
     Active Substance: CLOXACILLIN
  3. DUPHALAC [Concomitant]
     Active Substance: LACTULOSE
  4. AZATHIOPRINE. [Concomitant]
     Active Substance: AZATHIOPRINE
  5. MODIGRAF 0,2 MG, GRANULES POUR SUSPENSION BUVABLE [Concomitant]
  6. TERLIPRESSINE EVER PHARMA [Concomitant]
  7. TIXTAR 550 MG, COMPRIME PELLICULE [Concomitant]
     Active Substance: RIFAXIMIN
  8. ACIDE FOLIQUE [Concomitant]
     Active Substance: FOLIC ACID
  9. NEORECORMON 10 000 UI, SOLUTION INJECTABLE EN SERINGUE PR?REMPLIE [Concomitant]
  10. ZITHROMAX [Concomitant]
     Active Substance: AZITHROMYCIN DIHYDRATE
  11. VALGANCICLOVIR. [Concomitant]
     Active Substance: VALGANCICLOVIR
  12. RIBAVIRINE [Suspect]
     Active Substance: RIBAVIRIN
     Indication: HEPATITIS E
     Dosage: 1000MG PER DAY
     Route: 048
     Dates: start: 20180802, end: 20181019
  13. VITAMINE K DE SYNTHESE [Concomitant]
  14. ALBUMINE HUMAINE (ORIGINE PLACENTAIRE) [Concomitant]
  15. ABASAGLAR 100 UNITES/ML, SOLUTION INJECTABLE EN STYLO PREREMPLI [Concomitant]
     Active Substance: INSULIN GLARGINE

REACTIONS (2)
  - Cytopenia [Not Recovered/Not Resolved]
  - Liver disorder [Not Recovered/Not Resolved]

NARRATIVE: CASE EVENT DATE: 201810
